FAERS Safety Report 25170826 (Version 1)
Quarter: 2025Q2

REPORT INFORMATION
  Report Type: Spontaneous
  Country: CN (occurrence: CN)
  Receive Date: 20250408
  Receipt Date: 20250408
  Transmission Date: 20250717
  Serious: Yes (Hospitalization, Other)
  Sender: AUROBINDO
  Company Number: CN-AUROBINDO-AUR-APL-2025-018124

PATIENT
  Age: 56 Year
  Sex: Female

DRUGS (2)
  1. EVOMELA [Suspect]
     Active Substance: MELPHALAN HYDROCHLORIDE
     Indication: Plasma cell myeloma
     Dosage: 150 MILLIGRAM, ONCE A DAY
     Route: 041
     Dates: start: 20250224, end: 20250225
  2. EVOMELA [Suspect]
     Active Substance: MELPHALAN HYDROCHLORIDE
     Indication: Transplant

REACTIONS (9)
  - Myelosuppression [Recovering/Resolving]
  - Diarrhoea [Recovered/Resolved]
  - Infection [Recovering/Resolving]
  - Haematemesis [Recovered/Resolved]
  - Oropharyngeal pain [Unknown]
  - Chest pain [Recovering/Resolving]
  - Asthenia [Recovering/Resolving]
  - Nausea [Recovering/Resolving]
  - Vomiting [Recovering/Resolving]

NARRATIVE: CASE EVENT DATE: 20250302
